FAERS Safety Report 8327867-9 (Version None)
Quarter: 2012Q2

REPORT INFORMATION
  Report Type: 
  Country: None (occurrence: None)
  Receive Date: 20120502
  Receipt Date: 20120418
  Transmission Date: 20120825
  Serious: Yes (Hospitalization)
  Sender: FDA-Public Use
  Company Number: CN-MPIJNJ-2012-02938

PATIENT

DRUGS (5)
  1. CYCLOPHOSPHAMIDE [Concomitant]
     Indication: B-CELL LYMPHOMA
     Dosage: 1.4 G, UNK
     Dates: start: 20110113, end: 20110121
  2. EPIRUBICIN [Concomitant]
     Indication: B-CELL LYMPHOMA
     Dosage: 100 MG, UNK
     Dates: start: 20110113, end: 20110121
  3. VELCADE [Suspect]
     Indication: B-CELL LYMPHOMA
     Dosage: 2.8 MG, UNK
     Route: 042
     Dates: start: 20110113, end: 20110121
  4. DEXAMETHASONE [Concomitant]
     Indication: B-CELL LYMPHOMA
     Dosage: 15 MG, UNK
     Route: 042
     Dates: start: 20110113, end: 20110121
  5. ELDISINE [Concomitant]
     Indication: B-CELL LYMPHOMA
     Dosage: 4 MG, UNK
     Dates: start: 20110113, end: 20110121

REACTIONS (1)
  - BONE MARROW FAILURE [None]
